FAERS Safety Report 25458811 (Version 2)
Quarter: 2025Q4

REPORT INFORMATION
  Report Type: Spontaneous
  Country: EU (occurrence: EU)
  Receive Date: 20250620
  Receipt Date: 20251016
  Transmission Date: 20260117
  Serious: Yes (Hospitalization, Other)
  Sender: DR REDDYS
  Company Number: None

PATIENT
  Age: 54 Year
  Sex: Male

DRUGS (9)
  1. TICAGRELOR [Suspect]
     Active Substance: TICAGRELOR
     Indication: Product used for unknown indication
     Dosage: TICAGRELOR 90MG
     Route: 048
     Dates: start: 20230420
  2. QUETIAPINE [Suspect]
     Active Substance: QUETIAPINE
     Indication: Product used for unknown indication
     Dates: start: 20230420
  3. MIRTAZAPINE [Suspect]
     Active Substance: MIRTAZAPINE
     Indication: Product used for unknown indication
     Dosage: MIRTAZAPINA 45 MG
     Route: 048
     Dates: start: 20140902
  4. CLORAZEPATE DIPOTASSIUM [Suspect]
     Active Substance: CLORAZEPATE DIPOTASSIUM
     Indication: Product used for unknown indication
     Dosage: CLORAZEPATO 50MG
     Route: 048
     Dates: start: 20140522
  5. Sacubitrilo/Valsartan 49 mg/51 mg comprimido [Concomitant]
     Indication: Product used for unknown indication
     Route: 048
     Dates: start: 20230420
  6. LEVETIRACETAM [Concomitant]
     Active Substance: LEVETIRACETAM
     Indication: Product used for unknown indication
     Dosage: LEVETIRACETAM500MG
     Route: 048
     Dates: start: 20140522
  7. BIPERIDENO (500A) [Concomitant]
     Indication: Product used for unknown indication
     Dosage: BIPERIDEO 4MG
     Route: 048
     Dates: start: 20170410
  8. Nitroglicerina 5 mg/24 h 30 parches transdermicos (tipo 4) [Concomitant]
     Indication: Product used for unknown indication
     Dosage: NTG PATCH 5MG
     Route: 062
     Dates: start: 20230421
  9. BISOPROLOL [Concomitant]
     Active Substance: BISOPROLOL
     Indication: Product used for unknown indication
     Dosage: BISOPROLOL 2.5 MG
     Route: 048
     Dates: start: 20211021

REACTIONS (2)
  - Ileus paralytic [Recovered/Resolved]
  - Anaemia [Recovered/Resolved]

NARRATIVE: CASE EVENT DATE: 20250208
